FAERS Safety Report 10420988 (Version 1)
Quarter: 2014Q3

REPORT INFORMATION
  Report Type: Spontaneous
  Country: US (occurrence: None)
  Receive Date: 20140717
  Receipt Date: 20140717
  Transmission Date: 20150326
  Serious: No
  Sender: FDA-Public Use
  Company Number: ALCN2014US002117

PATIENT
  Age: 74 Year
  Sex: Female

DRUGS (1)
  1. SIMBRINZA [Suspect]
     Active Substance: BRIMONIDINE TARTRATE\BRINZOLAMIDE
     Dosage: BOTH EYES
     Route: 047

REACTIONS (1)
  - Medication residue present [None]

NARRATIVE: CASE EVENT DATE: 20140331
